FAERS Safety Report 7387047-0 (Version None)
Quarter: 2011Q1

REPORT INFORMATION
  Report Type: 
  Country: None (occurrence: None)
  Receive Date: 20110331
  Receipt Date: 20110324
  Transmission Date: 20110831
  Serious: Yes (Death)
  Sender: FDA-Public Use
  Company Number: GB-NOVOPROD-325598

PATIENT
  Sex: Male
  Weight: 102.6 kg

DRUGS (2)
  1. FUMADERM                           /01273301/ [Concomitant]
     Indication: PSORIASIS
     Dosage: UNK
     Route: 048
     Dates: start: 20101030
  2. VICTOZA [Suspect]
     Indication: TYPE 2 DIABETES MELLITUS

REACTIONS (1)
  - SUDDEN DEATH [None]
